FAERS Safety Report 5478673-4 (Version None)
Quarter: 2007Q4

REPORT INFORMATION
  Report Type: 
  Country: None (occurrence: None)
  Receive Date: 20071005
  Receipt Date: 20070927
  Transmission Date: 20080405
  Serious: Yes (Other)
  Sender: FDA-Public Use
  Company Number: US-ABBOTT-07P-163-0418837-00

PATIENT
  Sex: Female
  Weight: 74.91 kg

DRUGS (8)
  1. HUMIRA [Suspect]
     Indication: RHEUMATOID ARTHRITIS
     Route: 058
     Dates: start: 20070201
  2. HUMIRA [Suspect]
     Indication: PSORIATIC ARTHROPATHY
     Route: 058
     Dates: start: 20050101, end: 20070201
  3. METHOTREXATE [Concomitant]
     Indication: RHEUMATOID ARTHRITIS
     Route: 030
  4. METHOTREXATE [Concomitant]
     Indication: PSORIATIC ARTHROPATHY
  5. FOLIC ACID [Concomitant]
     Indication: RHEUMATOID ARTHRITIS
     Route: 048
  6. FOLIC ACID [Concomitant]
     Indication: PSORIATIC ARTHROPATHY
  7. CALCIUM [Concomitant]
     Indication: GASTRIC BYPASS
     Route: 048
  8. CYANOCOBALAMIN [Concomitant]
     Indication: GASTRIC BYPASS

REACTIONS (6)
  - ACCIDENTAL EXPOSURE [None]
  - ARTHRALGIA [None]
  - INJECTION SITE BRUISING [None]
  - INJECTION SITE SWELLING [None]
  - MUSCULOSKELETAL PAIN [None]
  - ROTATOR CUFF SYNDROME [None]
